FAERS Safety Report 5310017-0 (Version None)
Quarter: 2007Q2

REPORT INFORMATION
  Report Type: 
  Country: None (occurrence: None)
  Receive Date: 20070427
  Receipt Date: 20070419
  Transmission Date: 20071010
  Serious: Yes (Hospitalization)
  Sender: FDA-Public Use
  Company Number: US-GLAXOSMITHKLINE-A0552403A

PATIENT
  Age: 10 Year
  Sex: Male

DRUGS (2)
  1. PAXIL [Suspect]
     Indication: AGGRESSION
     Dosage: 10MG AT NIGHT
     Route: 048
     Dates: start: 20040601, end: 20040901
  2. ADDERALL 10 [Concomitant]
     Dates: end: 20040901

REACTIONS (10)
  - ADVERSE EVENT [None]
  - AGGRESSION [None]
  - DYSKINESIA [None]
  - IRRITABILITY [None]
  - MOOD ALTERED [None]
  - OBSESSIVE THOUGHTS [None]
  - PERSONALITY CHANGE [None]
  - SLEEP DISORDER [None]
  - SUICIDAL IDEATION [None]
  - THOUGHT INSERTION [None]
